FAERS Safety Report 10194222 (Version 1)
Quarter: 2014Q2

REPORT INFORMATION
  Report Type: Spontaneous
  Country: US (occurrence: US)
  Receive Date: 20140525
  Receipt Date: 20140525
  Transmission Date: 20141212
  Serious: No
  Sender: FDA-Public Use
  Company Number: US-009507513-1405USA010300

PATIENT
  Sex: 0

DRUGS (3)
  1. NASONEX [Suspect]
  2. SINGULAIR [Suspect]
     Dosage: OFF AND ON
  3. ALLEGRA [Suspect]

REACTIONS (2)
  - Nasopharyngitis [Unknown]
  - Sensation of foreign body [Unknown]
